FAERS Safety Report 7706267-6 (Version None)
Quarter: 2011Q3

REPORT INFORMATION
  Report Type: 
  Country: None (occurrence: None)
  Receive Date: 20110801
  Receipt Date: 20110609
  Transmission Date: 20111222
  Serious: Yes (Hospitalization)
  Sender: FDA-Public Use
  Company Number: AMAG201100133

PATIENT
  Age: 87 Year
  Sex: Male

DRUGS (1)
  1. FERAHEME [Suspect]
     Dosage: 60 ML, SINGLE, INTRAVENOUS
     Route: 042
     Dates: start: 20110505, end: 20110505

REACTIONS (7)
  - ANAPHYLACTIC REACTION [None]
  - BACK PAIN [None]
  - VOMITING [None]
  - WHEEZING [None]
  - BLOOD PRESSURE DECREASED [None]
  - RESPIRATORY TRACT CONGESTION [None]
  - NAUSEA [None]
